FAERS Safety Report 16577437 (Version 4)
Quarter: 2020Q1

REPORT INFORMATION
  Report Type: Spontaneous
  Country: US (occurrence: US)
  Receive Date: 20190716
  Receipt Date: 20200103
  Transmission Date: 20200409
  Serious: Yes (Hospitalization, Other)
  Sender: FDA-Public Use
  Company Number: US-PFIZER INC-2019300873

PATIENT
  Age: 58 Year
  Sex: Female
  Weight: 52.15 kg

DRUGS (3)
  1. CYMBALTA [Concomitant]
     Active Substance: DULOXETINE HYDROCHLORIDE
     Indication: NEUROPATHY PERIPHERAL
     Dosage: 30 MG, 1X/DAY
  2. GABAPENTIN. [Suspect]
     Active Substance: GABAPENTIN
     Indication: NEUROPATHY PERIPHERAL
     Dosage: UNK
     Route: 048
  3. GABAPENTIN. [Suspect]
     Active Substance: GABAPENTIN
     Indication: PAIN
     Dosage: 1200 MG, 2X/DAY (2 TABS, BID)
     Route: 048
     Dates: start: 2017, end: 201909

REACTIONS (8)
  - Fall [Not Recovered/Not Resolved]
  - Concussion [Recovered/Resolved]
  - Orthostatic hypotension [Not Recovered/Not Resolved]
  - Prescribed overdose [Recovered/Resolved]
  - Pain [Not Recovered/Not Resolved]
  - Head injury [Not Recovered/Not Resolved]
  - Limb injury [Not Recovered/Not Resolved]
  - Animal bite [Not Recovered/Not Resolved]

NARRATIVE: CASE EVENT DATE: 201809
